FAERS Safety Report 13402214 (Version 5)
Quarter: 2017Q3

REPORT INFORMATION
  Report Type: Report from Study
  Country: GB (occurrence: GB)
  Receive Date: 20170404
  Receipt Date: 20170719
  Transmission Date: 20171127
  Serious: Yes (Other)
  Sender: FDA-Public Use
  Company Number: GB-JNJFOC-20170334336

PATIENT
  Age: 54 Year
  Sex: Male

DRUGS (10)
  1. COLCHICINE. [Concomitant]
     Active Substance: COLCHICINE
     Dosage: 12 TABLET, ONE TO BE TAKEN 4 TIMES A DAY
     Route: 065
  2. STELARA [Suspect]
     Active Substance: USTEKINUMAB
     Indication: PSORIATIC ARTHROPATHY
     Route: 058
  3. DICLOFENAC SODIUM. [Concomitant]
     Active Substance: DICLOFENAC SODIUM
     Dosage: 84 TABLETS,GASTRO- RESISTANT CAPSULES. 3 TIMES A DAY IF NECESARY
     Route: 065
  4. OMEPRAZOLE. [Concomitant]
     Active Substance: OMEPRAZOLE
     Dosage: ONE CAPSULE ONE DAY HALF AN HOUR BEFORE BREAKFAST ??GASTRO-RESISTENT CAPSULE- 28 CAPSULE
     Route: 065
  5. DOXAZOSIN [Concomitant]
     Active Substance: DOXAZOSIN\DOXAZOSIN MESYLATE
     Dosage: 56 TABLET, 2 TO BE TAKEN EACH DAY
     Route: 065
  6. INDAPAMIDE. [Concomitant]
     Active Substance: INDAPAMIDE
     Dosage: ONE TO BE TAKEN EACH MORNING, 30 TABLET
     Route: 065
  7. TRAMADOL. [Concomitant]
     Active Substance: TRAMADOL
     Indication: PAIN
     Dosage: ONE TO BE TAKEN 4 TIMES A DAY FOR PAIN IF NECESSARY- 100 CAPSULE
  8. STELARA [Suspect]
     Active Substance: USTEKINUMAB
     Indication: PSORIASIS
     Route: 058
  9. ADIZEM [Concomitant]
     Active Substance: DILTIAZEM HYDROCHLORIDE
     Dosage: 28 CAPSULE
     Route: 065
  10. SALBUTAMOL [Concomitant]
     Active Substance: ALBUTEROL
     Dosage: ONE OR TWO PUFFS TO BE INHALED FOUR TIMES A DAY
     Route: 065

REACTIONS (8)
  - Arthralgia [Unknown]
  - Psoriasis [Not Recovered/Not Resolved]
  - Dyspnoea [Not Recovered/Not Resolved]
  - Wheezing [Not Recovered/Not Resolved]
  - Blood pressure increased [Unknown]
  - Lymphoedema [Not Recovered/Not Resolved]
  - Cellulitis [Not Recovered/Not Resolved]
  - Productive cough [Not Recovered/Not Resolved]

NARRATIVE: CASE EVENT DATE: 20161110
